FAERS Safety Report 4687630-7 (Version None)
Quarter: 2005Q2

REPORT INFORMATION
  Report Type: 
  Country: None (occurrence: None)
  Receive Date: 20050610
  Receipt Date: 20050606
  Transmission Date: 20051028
  Serious: Yes (Death)
  Sender: FDA-Public Use
  Company Number: PHBS2005IT08042

PATIENT
  Sex: Male

DRUGS (1)
  1. IMATINIB [Suspect]
     Indication: HYPEREOSINOPHILIC SYNDROME
     Dosage: 200 MG/DAY
     Route: 048
     Dates: start: 20020401, end: 20020801

REACTIONS (3)
  - CEREBRAL HAEMORRHAGE [None]
  - HYPERTENSION [None]
  - SEPSIS [None]
